FAERS Safety Report 4530882-4 (Version None)
Quarter: 2004Q4

REPORT INFORMATION
  Report Type: 
  Country: None (occurrence: None)
  Receive Date: 20041215
  Receipt Date: 20041209
  Transmission Date: 20050328
  Serious: Yes (Other)
  Sender: FDA-Public Use
  Company Number: 200420902BWH

PATIENT
  Sex: Male

DRUGS (1)
  1. LEVITRA [Suspect]
     Dosage: 30 MG, TOTAL DAILY, ORAL
     Route: 048

REACTIONS (2)
  - BRONCHOSPASM [None]
  - RASH [None]
